FAERS Safety Report 18322850 (Version 1)
Quarter: 2020Q3

REPORT INFORMATION
  Report Type: Spontaneous
  Country: CA (occurrence: CA)
  Receive Date: 20200928
  Receipt Date: 20200928
  Transmission Date: 20201103
  Serious: Yes (Death)
  Sender: FDA-Public Use
  Company Number: CA-JNJFOC-20200935059

PATIENT

DRUGS (3)
  1. METHYLPREDNISOLONE. [Suspect]
     Active Substance: METHYLPREDNISOLONE
     Indication: ACUTE GRAFT VERSUS HOST DISEASE
     Route: 065
  2. PENTOSTATIN. [Suspect]
     Active Substance: PENTOSTATIN
     Indication: ACUTE GRAFT VERSUS HOST DISEASE
     Route: 065
  3. REMICADE [Suspect]
     Active Substance: INFLIXIMAB
     Indication: ACUTE GRAFT VERSUS HOST DISEASE
     Route: 042

REACTIONS (4)
  - Off label use [Fatal]
  - Enterococcal infection [Fatal]
  - Fungal infection [Fatal]
  - Product use in unapproved indication [Fatal]
